FAERS Safety Report 11064269 (Version 1)
Quarter: 2015Q2

REPORT INFORMATION
  Report Type: Spontaneous
  Country: CH (occurrence: CH)
  Receive Date: 20150424
  Receipt Date: 20150424
  Transmission Date: 20150821
  Serious: Yes (Life-Threatening, Other)
  Sender: FDA-Public Use
  Company Number: CH-ROXANE LABORATORIES, INC.-2015-RO-00696RO

PATIENT
  Age: 64 Year
  Sex: Male

DRUGS (3)
  1. PREDNISONE. [Suspect]
     Active Substance: PREDNISONE
     Indication: LUNG TRANSPLANT
     Route: 065
  2. MYCOPHENOLATE MOFETIL. [Suspect]
     Active Substance: MYCOPHENOLATE MOFETIL
     Indication: LUNG TRANSPLANT
     Route: 065
  3. TACROLIMUS. [Suspect]
     Active Substance: TACROLIMUS
     Indication: LUNG TRANSPLANT
     Route: 065

REACTIONS (9)
  - Atrial fibrillation [Unknown]
  - Aortic stenosis [Recovered/Resolved]
  - Transplant rejection [Recovered/Resolved]
  - Staphylococcal infection [Recovered/Resolved]
  - Chronic kidney disease [Unknown]
  - Left ventricular dysfunction [Recovered/Resolved]
  - Thrombocytopenia [Unknown]
  - Pseudomonas infection [Recovered/Resolved]
  - Bronchostenosis [Unknown]

NARRATIVE: CASE EVENT DATE: 2008
